FAERS Safety Report 11761708 (Version 2)
Quarter: 2016Q4

REPORT INFORMATION
  Report Type: Spontaneous
  Country: FR (occurrence: FR)
  Receive Date: 20151120
  Receipt Date: 20161130
  Transmission Date: 20170206
  Serious: Yes (Hospitalization)
  Sender: FDA-Public Use
  Company Number: FR-GE HEALTHCARE MEDICAL DIAGNOSTICS-VISP-NO-0607S-0482

PATIENT
  Age: 45 Year
  Sex: Female

DRUGS (15)
  1. VISIPAQUE [Suspect]
     Active Substance: IODIXANOL
     Indication: DEPRESSED LEVEL OF CONSCIOUSNESS
     Route: 042
     Dates: start: 20060619, end: 20060619
  2. DEPAKINE [Suspect]
     Active Substance: VALPROATE SODIUM
     Route: 042
     Dates: start: 20060619, end: 20060623
  3. HEPARIN [Suspect]
     Active Substance: HEPARIN SODIUM
     Dates: start: 20060619, end: 20060621
  4. LOVENOX [Concomitant]
     Active Substance: ENOXAPARIN SODIUM
     Dates: start: 20060621, end: 20060623
  5. CERNEVIT [Concomitant]
     Active Substance: VITAMINS
     Dates: start: 20060619, end: 20060621
  6. ORGARAN [Concomitant]
     Active Substance: DANAPAROID SODIUM
     Dates: start: 20060624, end: 20060703
  7. MOPRAL [Concomitant]
     Active Substance: OMEPRAZOLE SODIUM
     Dates: start: 20060619, end: 20060621
  8. TRANXENE T-TAB [Concomitant]
     Active Substance: CLORAZEPATE DIPOTASSIUM
     Dates: start: 20060621, end: 20060623
  9. VISIPAQUE [Suspect]
     Active Substance: IODIXANOL
     Indication: DIAGNOSTIC PROCEDURE
     Route: 042
  10. IOMERON [Suspect]
     Active Substance: IOMEPROL
     Route: 042
     Dates: start: 20060619, end: 20060619
  11. DIPRIVAN [Concomitant]
     Active Substance: PROPOFOL
     Dates: start: 20060619
  12. MANNITOL. [Concomitant]
     Active Substance: MANNITOL
     Dates: start: 20060621
  13. MORPHINE [Concomitant]
     Active Substance: MORPHINE
     Dates: start: 20060619, end: 20060620
  14. NIMOTOP [Suspect]
     Active Substance: NIMODIPINE
     Route: 042
     Dates: start: 20060619, end: 20060624
  15. ZOPHREN [Concomitant]
     Active Substance: ONDANSETRON
     Dates: start: 20060620, end: 20060622

REACTIONS (1)
  - Acute generalised exanthematous pustulosis [Recovered/Resolved]

NARRATIVE: CASE EVENT DATE: 20060622
